FAERS Safety Report 20095789 (Version 2)
Quarter: 2021Q4

REPORT INFORMATION
  Report Type: Spontaneous
  Country: AU (occurrence: AU)
  Receive Date: 20211122
  Receipt Date: 20211126
  Transmission Date: 20220303
  Serious: Yes (Other)
  Sender: FDA-Public Use
  Company Number: AU-NOVARTISPH-NVSC2021AU263715

PATIENT
  Age: 37 Year
  Sex: Female

DRUGS (2)
  1. GILENYA [Suspect]
     Active Substance: FINGOLIMOD HYDROCHLORIDE
     Indication: Multiple sclerosis relapse
     Dosage: UNK
     Route: 065
     Dates: start: 2012
  2. LAMOTRIGINE [Suspect]
     Active Substance: LAMOTRIGINE
     Indication: Product used for unknown indication
     Dosage: UNK
     Route: 065

REACTIONS (16)
  - Eclampsia [Unknown]
  - Meningitis aseptic [Unknown]
  - Systemic lupus erythematosus [Unknown]
  - Neutropenia [Unknown]
  - Autoimmune disorder [Unknown]
  - Seizure [Unknown]
  - Injury [Unknown]
  - Lumbar puncture [Unknown]
  - Confusional state [Unknown]
  - Photosensitivity reaction [Unknown]
  - Nervous system disorder [Unknown]
  - Central nervous system lesion [Unknown]
  - Ulcer [Unknown]
  - Arthritis [Unknown]
  - Alopecia [Unknown]
  - Headache [Unknown]

NARRATIVE: CASE EVENT DATE: 20040101
